FAERS Safety Report 16847674 (Version 1)
Quarter: 2019Q3

REPORT INFORMATION
  Report Type: Spontaneous
  Country: US (occurrence: US)
  Receive Date: 20190924
  Receipt Date: 20190924
  Transmission Date: 20191005
  Serious: No
  Sender: FDA-Public Use
  Company Number: US-ACORDA-ACO_160868_2019

PATIENT
  Sex: Male

DRUGS (3)
  1. INBRIJA [Suspect]
     Active Substance: LEVODOPA
     Indication: PARKINSON^S DISEASE
     Dosage: 2 CAPSULES PRN, UP TO 5 TIMES A DAY
     Dates: start: 20190827
  2. INBRIJA [Suspect]
     Active Substance: LEVODOPA
     Indication: ON AND OFF PHENOMENON
  3. CARBIDOPA AND LEVODOPA [Concomitant]
     Active Substance: CARBIDOPA\LEVODOPA
     Indication: PRODUCT USED FOR UNKNOWN INDICATION
     Dosage: UNK, DISSOLVES ON TONGUE
     Route: 065

REACTIONS (6)
  - Device issue [Unknown]
  - Coordination abnormal [Unknown]
  - Therapeutic product effect variable [Unknown]
  - Product physical issue [Unknown]
  - Cough [Unknown]
  - Dyskinesia [Unknown]
